FAERS Safety Report 9915798 (Version 2)
Quarter: 2014Q1

REPORT INFORMATION
  Report Type: Spontaneous
  Country: CH (occurrence: CH)
  Receive Date: 20140221
  Receipt Date: 20140317
  Transmission Date: 20141002
  Serious: Yes (Death, Life-Threatening, Hospitalization, Other)
  Sender: FDA-Public Use
  Company Number: CH-BAYER-2014-021514

PATIENT
  Age: 52 Year
  Sex: Male

DRUGS (1)
  1. BETAFERON [Suspect]
     Indication: MULTIPLE SCLEROSIS
     Dosage: 250 ?G, / 3 TIMES A WEEK
     Route: 058
     Dates: start: 20121128, end: 201401

REACTIONS (5)
  - Cerebral infarction [Fatal]
  - Hypoxic-ischaemic encephalopathy [Fatal]
  - Myocardial infarction [Recovering/Resolving]
  - Cardiac arrest [Recovered/Resolved]
  - Hyperthyroidism [Not Recovered/Not Resolved]
